FAERS Safety Report 4524740-9 (Version None)
Quarter: 2004Q4

REPORT INFORMATION
  Report Type: 
  Country: None (occurrence: None)
  Receive Date: 20041209
  Receipt Date: 20041202
  Transmission Date: 20050328
  Serious: Yes (Life-Threatening, Hospitalization, Disabling)
  Sender: FDA-Public Use
  Company Number: K200401841

PATIENT
  Age: 76 Year
  Sex: Female

DRUGS (5)
  1. INTAL [Suspect]
     Dosage: SEE IMAGE
     Route: 055
     Dates: start: 20040101, end: 20040901
  2. INTAL [Suspect]
     Dosage: SEE IMAGE
     Route: 055
     Dates: start: 20041009
  3. VENTOLIN [Concomitant]
  4. BECLOFORTE (BECLOMETASONE DIPROPIONATE) [Concomitant]
  5. ANTI-HISTAMINE TAB [Concomitant]

REACTIONS (6)
  - ASPHYXIA [None]
  - BRAIN DAMAGE [None]
  - BRONCHOSPASM [None]
  - DRUG EFFECT DECREASED [None]
  - EXTRASYSTOLES [None]
  - HYPOXIC ENCEPHALOPATHY [None]
